FAERS Safety Report 7124224-8 (Version None)
Quarter: 2010Q4

REPORT INFORMATION
  Report Type: 
  Country: None (occurrence: None)
  Receive Date: 20101126
  Receipt Date: 20101112
  Transmission Date: 20110411
  Serious: Yes (Hospitalization)
  Sender: FDA-Public Use
  Company Number: GXKR2010IT12887

PATIENT
  Sex: Male

DRUGS (2)
  1. AMOXICILLIN [Suspect]
     Route: 065
  2. KETOPROFEN [Suspect]
     Route: 065

REACTIONS (2)
  - OEDEMA MOUTH [None]
  - TONGUE OEDEMA [None]
